FAERS Safety Report 19019937 (Version 1)
Quarter: 2021Q1

REPORT INFORMATION
  Report Type: Report from Study
  Country: CA (occurrence: CA)
  Receive Date: 20210313
  Receipt Date: 20210313
  Transmission Date: 20210420
  Serious: Yes (Death, Hospitalization)
  Sender: FDA-Public Use
  Company Number: NVSC2020CA090697

PATIENT
  Age: 63 Year
  Sex: Female

DRUGS (1)
  1. AFINITOR [Suspect]
     Active Substance: EVEROLIMUS
     Indication: BREAST CANCER
     Dosage: 5 MG, QD
     Route: 048
     Dates: start: 20200307

REACTIONS (9)
  - Death [Fatal]
  - Malaise [Unknown]
  - Drug ineffective [Unknown]
  - Malignant neoplasm progression [Unknown]
  - Dry mouth [Not Recovered/Not Resolved]
  - Breast cancer [Unknown]
  - Gingival pain [Recovered/Resolved]
  - Stomatitis [Unknown]
  - Pyrexia [Unknown]

NARRATIVE: CASE EVENT DATE: 202003
